FAERS Safety Report 25125642 (Version 1)
Quarter: 2025Q1

REPORT INFORMATION
  Report Type: Spontaneous
  Country: NL (occurrence: NL)
  Receive Date: 20250326
  Receipt Date: 20250326
  Transmission Date: 20250409
  Serious: Yes (Hospitalization)
  Sender: TEVA
  Company Number: None

PATIENT
  Age: 78 Year
  Sex: Male
  Weight: 73.3 kg

DRUGS (2)
  1. FENTANYL [Suspect]
     Active Substance: FENTANYL
     Indication: Analgesic therapy
     Dosage: 1 PIECE 1X PER 72 HOURS;?PLASTER / BRAND NAME NOT SPECIFIED
     Route: 062
     Dates: start: 20250224
  2. OXYCODONE [Suspect]
     Active Substance: OXYCODONE
     Indication: Analgesic therapy
     Dosage: 2 X PER DAY 10 MG;?BRAND NAME NOT SPECIFIED
     Route: 048
     Dates: start: 20250227, end: 20250306

REACTIONS (3)
  - Abdominal pain [Recovering/Resolving]
  - Nausea [Recovering/Resolving]
  - Constipation [Recovering/Resolving]
